FAERS Safety Report 12721305 (Version 1)
Quarter: 2016Q3

REPORT INFORMATION
  Report Type: Spontaneous
  Country: US (occurrence: US)
  Receive Date: 20160907
  Receipt Date: 20160907
  Transmission Date: 20161109
  Serious: No
  Sender: FDA-Public Use
  Company Number: None

PATIENT
  Age: 23 Year
  Sex: Female
  Weight: 89.36 kg

DRUGS (2)
  1. MIRENA [Suspect]
     Active Substance: LEVONORGESTREL
  2. PRENATAL VITAMJNS [Concomitant]

REACTIONS (6)
  - Device expulsion [None]
  - Pain in extremity [None]
  - Vulvovaginal burning sensation [None]
  - Urticaria [None]
  - Vulvovaginal swelling [None]
  - Hypoaesthesia [None]

NARRATIVE: CASE EVENT DATE: 20160825
